FAERS Safety Report 8556899-0 (Version None)
Quarter: 2012Q3

REPORT INFORMATION
  Report Type: 
  Country: None (occurrence: None)
  Receive Date: 20120801
  Receipt Date: 20120724
  Transmission Date: 20120928
  Serious: Yes (Hospitalization, Other)
  Sender: FDA-Public Use
  Company Number: PK-ROXANE LABORATORIES, INC.-2012-RO-01589RO

PATIENT
  Age: 27 Year
  Sex: Male

DRUGS (4)
  1. AZATHIOPRINE SODIUM [Suspect]
     Indication: RENAL TRANSPLANT
  2. DELTACORTRIL [Suspect]
     Indication: RENAL TRANSPLANT
  3. CYCLOSPORINE [Suspect]
     Indication: RENAL TRANSPLANT
  4. TACROLIMUS [Suspect]
     Indication: RENAL TRANSPLANT

REACTIONS (6)
  - GRAFT DYSFUNCTION [None]
  - TRANSPLANT REJECTION [None]
  - DIABETES MELLITUS [None]
  - PYELONEPHRITIS [None]
  - CHOLESTASIS [None]
  - HEPATITIS C [None]
